FAERS Safety Report 24253077 (Version 1)
Quarter: 2024Q3

REPORT INFORMATION
  Report Type: Spontaneous
  Country: JP (occurrence: JP)
  Receive Date: 20240827
  Receipt Date: 20240827
  Transmission Date: 20241016
  Serious: Yes (Death, Hospitalization, Other)
  Sender: CHEPLAPHARM
  Company Number: JP-CLGN-JP-CLI-2024-010489

PATIENT
  Age: 61 Year
  Sex: Male

DRUGS (1)
  1. HYDROXYUREA [Suspect]
     Active Substance: HYDROXYUREA
     Indication: Eosinophilic leukaemia
     Dosage: 1 GRAM, QD?DAILY DOSE: 1 GRAM

REACTIONS (4)
  - General physical health deterioration [Fatal]
  - Endocarditis fibroplastica [Unknown]
  - Haemorrhagic cerebral infarction [Unknown]
  - Off label use [Unknown]
